FAERS Safety Report 5841775-4 (Version None)
Quarter: 2008Q3

REPORT INFORMATION
  Report Type: 
  Country: None (occurrence: None)
  Receive Date: 20080811
  Receipt Date: 20080811
  Transmission Date: 20090109
  Serious: Yes (Disabling)
  Sender: FDA-Public Use
  Company Number: None

PATIENT
  Age: 29 Year
  Sex: Female
  Weight: 61.2356 kg

DRUGS (1)
  1. LUPRON DEPOT [Suspect]
     Indication: ENDOMETRIOSIS
     Dosage: SHOT EVERY MONTH 6 VAG
     Route: 067
     Dates: start: 20040518, end: 20041018

REACTIONS (10)
  - ACTIVITIES OF DAILY LIVING IMPAIRED [None]
  - DISCOMFORT [None]
  - FACIAL PALSY [None]
  - GASTRIC DISORDER [None]
  - INTERVERTEBRAL DISC PROTRUSION [None]
  - MUSCULAR WEAKNESS [None]
  - NERVOUS SYSTEM DISORDER [None]
  - PAIN IN EXTREMITY [None]
  - PANIC ATTACK [None]
  - SWELLING [None]
